FAERS Safety Report 14756909 (Version 2)
Quarter: 2018Q2

REPORT INFORMATION
  Report Type: Spontaneous
  Country: US (occurrence: US)
  Receive Date: 20180413
  Receipt Date: 20180416
  Transmission Date: 20180711
  Serious: Yes (Hospitalization)
  Sender: FDA-Public Use
  Company Number: US-ASTRAZENECA-2018SE44431

PATIENT
  Sex: Male
  Weight: 85.5 kg

DRUGS (5)
  1. FARXIGA [Suspect]
     Active Substance: DAPAGLIFLOZIN PROPANEDIOL
     Indication: TYPE 1 DIABETES MELLITUS
     Dosage: 1.0DF UNKNOWN
     Route: 048
     Dates: start: 20160201, end: 20180126
  2. LANTUS [Concomitant]
     Active Substance: INSULIN GLARGINE
  3. FINASTERIDE. [Concomitant]
     Active Substance: FINASTERIDE
  4. HUMALOG [Concomitant]
     Active Substance: INSULIN LISPRO
  5. ATORVASTATIN [Concomitant]
     Active Substance: ATORVASTATIN

REACTIONS (3)
  - Dehydration [Recovered/Resolved]
  - Influenza [Unknown]
  - Diabetic ketoacidosis [Recovered/Resolved]

NARRATIVE: CASE EVENT DATE: 20180126
